FAERS Safety Report 22172538 (Version 1)
Quarter: 2023Q2

REPORT INFORMATION
  Report Type: Spontaneous
  Country: DE (occurrence: DE)
  Receive Date: 20230404
  Receipt Date: 20230404
  Transmission Date: 20230722
  Serious: Yes (Hospitalization, Disabling, Congenital Anomaly, Other)
  Sender: FDA-Public Use
  Company Number: DE-EMBRYOTOX-202118317

PATIENT
  Age: 1 Day
  Sex: Male
  Weight: 2.28 kg

DRUGS (7)
  1. AMANTADINE [Suspect]
     Active Substance: AMANTADINE
     Indication: Foetal exposure during pregnancy
     Dosage: MATERNAL DOSE: 150 [MG/D]/ INITIALLY 150 MG/D, GW 7 REDUCED TO 100 MG/D FROM 14 SEP 2021 TO 03 NOV 2
     Route: 064
  2. OXYBUTYNIN [Suspect]
     Active Substance: OXYBUTYNIN
     Indication: Foetal exposure during pregnancy
     Dosage: MATERNAL DOSE: 39 [MG/D ]/ DAILY 3X13 MG 3 SEPARATED DOSES FROM 14 SEP 2021 TO 02 JUN 2022 FOR URINA
     Route: 064
  3. NATALIZUMAB [Suspect]
     Active Substance: NATALIZUMAB
     Indication: Foetal exposure during pregnancy
     Dosage: MATERNAL DOSE: 300 [MG/4WK] FROM 14 SEP 2021 TO 05 MAY 2022
     Route: 064
  4. ARIXTRA [Concomitant]
     Active Substance: FONDAPARINUX SODIUM
     Indication: Foetal exposure during pregnancy
     Dosage: MATERNAL DOSE: 2.5 [MG/D ]/ FRAGMIN SINCE GW 10, AFTER SOME WEEKS CHANGE TO ARIXTRA, UNKNOWN WHEN. F
     Route: 064
  5. DALTEPARIN SODIUM [Concomitant]
     Active Substance: DALTEPARIN SODIUM
     Indication: Foetal exposure during pregnancy
     Dosage: MATERNAL DOSE: 2500 [IE/D ]/ START GW 10, AFTER SOME WEEKS CHANGE TO ARIXTRA, UNKNOWN WHEN, FOR FACT
     Route: 064
  6. ACETAMINOPHEN [Concomitant]
     Active Substance: ACETAMINOPHEN
     Indication: Foetal exposure during pregnancy
     Dosage: MATERNAL DOSE: 500 MG/D [BEI BEDARF ]/ 500 MG, AS NEEDED, RARELY USED FOR HEADACE FROM 14 SEP 2021 T
     Route: 064
  7. FOSFOMYCIN [Concomitant]
     Active Substance: FOSFOMYCIN
     Indication: Foetal exposure during pregnancy
     Dosage: MATERNAL DOSE: 3000 [MG/D ]/ SINGLE DOSE FROM 21 DEC 2021 TO 21 DEC 2021
     Route: 064

REACTIONS (10)
  - Patent ductus arteriosus [Unknown]
  - Small for dates baby [Recovered/Resolved]
  - Atrial septal defect [Unknown]
  - Brain malformation [Unknown]
  - Hypopituitarism [Not Recovered/Not Resolved]
  - Congenital central nervous system anomaly [Unknown]
  - Hypoglycaemia neonatal [Unknown]
  - Selective eating disorder [Unknown]
  - Temperature regulation disorder [Unknown]
  - Foetal exposure during pregnancy [Unknown]

NARRATIVE: CASE EVENT DATE: 20220601
